FAERS Safety Report 21074432 (Version 1)
Quarter: 2022Q3

REPORT INFORMATION
  Report Type: Report from Study
  Country: US (occurrence: US)
  Receive Date: 20220713
  Receipt Date: 20220713
  Transmission Date: 20221027
  Serious: Yes (Other)
  Sender: FDA-Public Use
  Company Number: US-drreddys-CLI/USA/22/0152043

PATIENT
  Age: 22 Year
  Sex: Female

DRUGS (3)
  1. ACCUTANE [Suspect]
     Active Substance: ISOTRETINOIN
     Indication: Acne
     Dates: start: 20211021
  2. ACCUTANE [Suspect]
     Active Substance: ISOTRETINOIN
     Dates: start: 202111
  3. ACCUTANE [Suspect]
     Active Substance: ISOTRETINOIN
     Dates: start: 20220518, end: 20220622

REACTIONS (1)
  - Exposure during pregnancy [Unknown]

NARRATIVE: CASE EVENT DATE: 20220622
